FAERS Safety Report 5495217-1 (Version None)
Quarter: 2007Q4

REPORT INFORMATION
  Report Type: 
  Country: None (occurrence: None)
  Receive Date: 20071024
  Receipt Date: 20071015
  Transmission Date: 20080405
  Serious: Yes (Death)
  Sender: FDA-Public Use
  Company Number: TW-GENENTECH-249750

PATIENT
  Age: 19 Year
  Sex: Male

DRUGS (1)
  1. RITUXAN [Suspect]
     Indication: HAEMOLYTIC ANAEMIA
     Dosage: 100 MG, SINGLE
     Dates: start: 20071001, end: 20071001

REACTIONS (1)
  - DEATH [None]
